FAERS Safety Report 6890645-1 (Version None)
Quarter: 2010Q3

REPORT INFORMATION
  Report Type: 
  Country: None (occurrence: None)
  Receive Date: 20100731
  Receipt Date: 20090126
  Transmission Date: 20110219
  Serious: No
  Sender: FDA-Public Use
  Company Number: US-PFIZER INC-2009160830

PATIENT
  Sex: Male
  Weight: 68.9 kg

DRUGS (3)
  1. LIPITOR [Suspect]
     Indication: BLOOD CHOLESTEROL INCREASED
     Dosage: 10 MG, 1X/DAY
     Route: 048
     Dates: start: 20080601, end: 20090120
  2. DITROPAN [Concomitant]
     Dosage: UNK
  3. ISPAGHULA HUSK [Concomitant]
     Dosage: UNK

REACTIONS (2)
  - BACK PAIN [None]
  - MYALGIA [None]
